FAERS Safety Report 25082208 (Version 3)
Quarter: 2025Q2

REPORT INFORMATION
  Report Type: Spontaneous
  Country: MX (occurrence: MX)
  Receive Date: 20250317
  Receipt Date: 20250529
  Transmission Date: 20250716
  Serious: Yes (Other)
  Sender: CSL BEHRING
  Company Number: MX-BEH-2025198797

PATIENT
  Age: 4 Month
  Sex: Male
  Weight: 3.2 kg

DRUGS (1)
  1. HIZENTRA [Suspect]
     Active Substance: HUMAN IMMUNOGLOBULIN G
     Indication: Primary immunodeficiency syndrome
     Route: 042
     Dates: start: 20250306, end: 20250307

REACTIONS (13)
  - Anaphylactic shock [Recovered/Resolved]
  - Incorrect route of product administration [Unknown]
  - Cyanosis [Recovered/Resolved]
  - Skin disorder [Recovered/Resolved]
  - Palatal oedema [Recovered/Resolved]
  - Heart rate increased [Recovered/Resolved]
  - Respiratory rate increased [Recovered/Resolved]
  - Secretion discharge [Recovered/Resolved]
  - Irritability [Recovered/Resolved]
  - Wheezing [Recovered/Resolved]
  - Tachycardia [Recovered/Resolved]
  - Bronchospasm [Recovered/Resolved]
  - Oxygen saturation decreased [Recovered/Resolved]

NARRATIVE: CASE EVENT DATE: 20250306
